FAERS Safety Report 5468733-6 (Version None)
Quarter: 2007Q3

REPORT INFORMATION
  Report Type: 
  Country: None (occurrence: None)
  Receive Date: 20070926
  Receipt Date: 20070917
  Transmission Date: 20080115
  Serious: Yes (Hospitalization, Other)
  Sender: FDA-Public Use
  Company Number: US-PFIZER INC-2006114363

PATIENT
  Sex: Female
  Weight: 65.8 kg

DRUGS (7)
  1. CELEBREX [Suspect]
     Indication: OSTEOARTHRITIS
     Dates: start: 20001001, end: 20030301
  2. CELEBREX [Suspect]
     Indication: BACK PAIN
  3. BEXTRA [Suspect]
     Indication: OSTEOARTHRITIS
  4. BEXTRA [Suspect]
     Indication: BACK PAIN
  5. VIOXX [Suspect]
     Indication: OSTEOARTHRITIS
     Dosage: TEXT:12.5 / 25 MG-FREQ:1-2 TIMES
     Dates: start: 20010806, end: 20040930
  6. VIOXX [Suspect]
     Indication: BACK PAIN
  7. VICODIN [Concomitant]

REACTIONS (3)
  - CEREBROVASCULAR ACCIDENT [None]
  - MYOCARDIAL INFARCTION [None]
  - TRANSIENT ISCHAEMIC ATTACK [None]
